FAERS Safety Report 7517886-4 (Version None)
Quarter: 2011Q2

REPORT INFORMATION
  Report Type: 
  Country: None (occurrence: None)
  Receive Date: 20110527
  Receipt Date: 20110527
  Transmission Date: 20111010
  Serious: Yes (Life-Threatening)
  Sender: FDA-Public Use
  Company Number: None

PATIENT
  Sex: Male
  Weight: 61 kg

DRUGS (2)
  1. INSULIN [Suspect]
     Indication: DIABETES MELLITUS
     Dosage: 2 UNITS X1 SUBCUT
     Route: 058
  2. INSULIN [Suspect]
     Indication: DIABETES MELLITUS
     Dosage: 28 UNITS DAILY AT PM SUBCUT
     Route: 058
     Dates: end: 20110304

REACTIONS (1)
  - BLOOD GLUCOSE DECREASED [None]
